FAERS Safety Report 25287357 (Version 2)
Quarter: 2025Q2

REPORT INFORMATION
  Report Type: Spontaneous
  Country: US (occurrence: US)
  Receive Date: 20250509
  Receipt Date: 20250509
  Transmission Date: 20250716
  Serious: Yes (Other)
  Sender: SERVIER
  Company Number: US-SERVIER-S25006096

PATIENT

DRUGS (1)
  1. TIBSOVO [Suspect]
     Active Substance: IVOSIDENIB
     Indication: Bone cancer
     Route: 048
     Dates: start: 202501

REACTIONS (3)
  - Malignant neoplasm progression [Unknown]
  - Bone pain [Unknown]
  - Drug ineffective for unapproved indication [Recovered/Resolved]

NARRATIVE: CASE EVENT DATE: 20250304
